FAERS Safety Report 10473655 (Version 1)
Quarter: 2014Q3

REPORT INFORMATION
  Report Type: Spontaneous
  Country: US (occurrence: US)
  Receive Date: 20140924
  Receipt Date: 20140924
  Transmission Date: 20150326
  Serious: Yes (Hospitalization, Other)
  Sender: FDA-Public Use
  Company Number: US-ELI_LILLY_AND_COMPANY-US201409005849

PATIENT
  Age: 77 Year
  Sex: Male

DRUGS (4)
  1. PRILOSEC [Concomitant]
     Active Substance: OMEPRAZOLE MAGNESIUM
  2. HUMALOG [Suspect]
     Active Substance: INSULIN LISPRO
     Indication: TYPE 1 DIABETES MELLITUS
     Dosage: UNK
     Route: 058
     Dates: start: 1996
  3. ENALAPRIL [Concomitant]
     Active Substance: ENALAPRIL
     Indication: RENAL DISORDER
  4. LEVOTHYROXINE [Concomitant]
     Active Substance: LEVOTHYROXINE

REACTIONS (13)
  - Blood glucose increased [Recovered/Resolved]
  - Glycosylated haemoglobin increased [Unknown]
  - Cystitis [Unknown]
  - Hypoglycaemic unconsciousness [Recovered/Resolved]
  - Herpes zoster [Unknown]
  - Prostate infection [Unknown]
  - Renal impairment [Unknown]
  - Drug ineffective [Recovered/Resolved]
  - Incorrect product storage [Unknown]
  - Feeling abnormal [Unknown]
  - Blood glucose increased [Recovering/Resolving]
  - Incorrect dose administered [Unknown]
  - Kidney infection [Unknown]

NARRATIVE: CASE EVENT DATE: 2004
